FAERS Safety Report 4542490-X (Version None)
Quarter: 2005Q1

REPORT INFORMATION
  Report Type: 
  Country: None (occurrence: None)
  Receive Date: 20041223
  Receipt Date: 20041102
  Transmission Date: 20050727
  Serious: No
  Sender: FDA-Public Use
  Company Number: US-JNJFOC-20041101362

PATIENT
  Age: 32 Year
  Sex: Female
  Weight: 69.4003 kg

DRUGS (5)
  1. ORTHO EVRA [Suspect]
     Indication: CONTRACEPTION
     Dosage: 1 DOSE(S), 3 IN 4 WEEK, TRANSDERMAL
     Route: 062
     Dates: start: 20040601
  2. NEURONTIN [Concomitant]
  3. BEXTRA [Concomitant]
  4. HYDROCODONE (HYDROCODONE) [Concomitant]
  5. IBUPROFEN (UBUPROFEN) [Concomitant]

REACTIONS (3)
  - AMENORRHOEA [None]
  - DYSMENORRHOEA [None]
  - HYPOMENORRHOEA [None]
